FAERS Safety Report 13447402 (Version 2)
Quarter: 2017Q2

REPORT INFORMATION
  Report Type: Spontaneous
  Country: PL (occurrence: PL)
  Receive Date: 20170417
  Receipt Date: 20170515
  Transmission Date: 20170830
  Serious: Yes (Life-Threatening)
  Sender: FDA-Public Use
  Company Number: PL-ELI_LILLY_AND_COMPANY-PL201704004175

PATIENT
  Age: 74 Year
  Sex: Male
  Weight: 66 kg

DRUGS (16)
  1. ADRENALINE                         /00003901/ [Concomitant]
     Active Substance: EPINEPHRINE
     Indication: SYNCOPE
  2. CLEMASTINE [Concomitant]
     Active Substance: CLEMASTINE
     Indication: DYSPNOEA
  3. HYDROCORTISONE. [Concomitant]
     Active Substance: HYDROCORTISONE
     Indication: DYSPNOEA
  4. CLEMASTINE [Concomitant]
     Active Substance: CLEMASTINE
     Indication: PALLOR
     Dosage: UNK UNK, UNKNOWN
     Route: 042
     Dates: start: 20170324
  5. ERBITUX [Suspect]
     Active Substance: CETUXIMAB
     Indication: COLORECTAL CANCER METASTATIC
     Dosage: 400 MG/M2, UNKNOWN
     Route: 042
     Dates: start: 20170324, end: 20170324
  6. CLEMASTINE [Concomitant]
     Active Substance: CLEMASTINE
     Indication: SYNCOPE
  7. ADRENALINE                         /00003901/ [Concomitant]
     Active Substance: EPINEPHRINE
     Indication: CHILLS
  8. ADRENALINE                         /00003901/ [Concomitant]
     Active Substance: EPINEPHRINE
     Indication: PALLOR
     Dosage: UNK UNK, UNKNOWN
     Route: 065
     Dates: start: 20170324
  9. ADRENALINE                         /00003901/ [Concomitant]
     Active Substance: EPINEPHRINE
     Indication: DYSPNOEA
  10. ADRENALINE                         /00003901/ [Concomitant]
     Active Substance: EPINEPHRINE
     Indication: WHEEZING
  11. HYDROCORTISONE. [Concomitant]
     Active Substance: HYDROCORTISONE
     Indication: PALLOR
     Dosage: UNK UNK, UNKNOWN
     Route: 042
     Dates: start: 20170324
  12. HYDROCORTISONE. [Concomitant]
     Active Substance: HYDROCORTISONE
     Indication: SYNCOPE
  13. CLEMASTINE [Concomitant]
     Active Substance: CLEMASTINE
     Indication: WHEEZING
  14. HYDROCORTISONE. [Concomitant]
     Active Substance: HYDROCORTISONE
     Indication: CHILLS
  15. HYDROCORTISONE. [Concomitant]
     Active Substance: HYDROCORTISONE
     Indication: WHEEZING
  16. CLEMASTINE [Concomitant]
     Active Substance: CLEMASTINE
     Indication: CHILLS

REACTIONS (5)
  - Pallor [Recovered/Resolved]
  - Chills [Recovered/Resolved]
  - Wheezing [Recovered/Resolved]
  - Syncope [Recovered/Resolved]
  - Dyspnoea [Recovered/Resolved]

NARRATIVE: CASE EVENT DATE: 20170324
